FAERS Safety Report 8203673-0 (Version None)
Quarter: 2012Q1

REPORT INFORMATION
  Report Type: 
  Country: None (occurrence: None)
  Receive Date: 20120308
  Receipt Date: 20120222
  Transmission Date: 20120608
  Serious: Yes (Hospitalization)
  Sender: FDA-Public Use
  Company Number: 2011SGN00278

PATIENT
  Age: 29 Year
  Sex: Female
  Weight: 58.9 kg

DRUGS (6)
  1. ALAVERT [Concomitant]
  2. LYRICA [Concomitant]
  3. BRENTUXIMAB VEDOTIN/PLACEBO (BRENTUXIMAB VEDOTIN/PLACEBO) INJECTION [Suspect]
     Indication: HODGKIN'S DISEASE
     Dosage: 1.8 MG/KG, Q21D, INTRAVENOUS
     Route: 042
     Dates: start: 20110314, end: 20111011
  4. NEURONTIN [Concomitant]
  5. ACYCLOVIR [Concomitant]
  6. AVIANE (ETHINYLESTRADIOL. LEVONORGESTREL) [Concomitant]

REACTIONS (2)
  - PNEUMONIA [None]
  - HUMAN RHINOVIRUS TEST POSITIVE [None]
